FAERS Safety Report 22535262 (Version 3)
Quarter: 2023Q4

REPORT INFORMATION
  Report Type: Report from Study
  Country: US (occurrence: US)
  Receive Date: 20230608
  Receipt Date: 20231113
  Transmission Date: 20240109
  Serious: No
  Sender: FDA-Public Use
  Company Number: US-002147023-NVSC2023US127332

PATIENT
  Sex: Female

DRUGS (7)
  1. KESIMPTA [Suspect]
     Active Substance: OFATUMUMAB
     Indication: Multiple sclerosis
     Dosage: INJECT 1 PEN (20MG) SUBCUTANEOUSLY MONTHLY STARTING AT WEEK 4 AS DIRECTED
     Route: 058
  2. KESIMPTA [Suspect]
     Active Substance: OFATUMUMAB
     Dosage: UNK
     Route: 065
     Dates: start: 20230609
  3. IBUPROFEN [Concomitant]
     Active Substance: IBUPROFEN
     Indication: Product used for unknown indication
     Dosage: UNK
     Route: 065
  4. METHOCARBAMOL [Concomitant]
     Active Substance: METHOCARBAMOL
     Indication: Product used for unknown indication
     Dosage: UNK
     Route: 065
  5. YAZ [Concomitant]
     Active Substance: DROSPIRENONE\ETHINYL ESTRADIOL
     Indication: Product used for unknown indication
     Dosage: UNK
     Route: 065
  6. TOPAMAX [Concomitant]
     Active Substance: TOPIRAMATE
     Indication: Product used for unknown indication
     Dosage: UNK
     Route: 065
  7. LOSARTAN POTASSIUM [Concomitant]
     Active Substance: LOSARTAN POTASSIUM
     Indication: Product used for unknown indication
     Dosage: UNK
     Route: 065

REACTIONS (2)
  - Peripheral swelling [Unknown]
  - Nausea [Recovered/Resolved]
